FAERS Safety Report 25426289 (Version 2)
Quarter: 2025Q2

REPORT INFORMATION
  Report Type: Spontaneous
  Country: US (occurrence: US)
  Receive Date: 20250612
  Receipt Date: 20250612
  Transmission Date: 20250717
  Serious: Yes (Other)
  Sender: ABBVIE
  Company Number: US-ABBVIE-6320650

PATIENT
  Sex: Male

DRUGS (1)
  1. CREON [Suspect]
     Active Substance: PANCRELIPASE AMYLASE\PANCRELIPASE LIPASE\PANCRELIPASE PROTEASE
     Indication: Pancreatitis chronic
     Route: 048

REACTIONS (8)
  - Neoplasm malignant [Unknown]
  - Chest pain [Unknown]
  - Adverse drug reaction [Unknown]
  - Crohn^s disease [Unknown]
  - Chronic kidney disease [Unknown]
  - Diabetes mellitus [Unknown]
  - Unevaluable event [Unknown]
  - Speech disorder [Unknown]
